FAERS Safety Report 13049113 (Version 3)
Quarter: 2017Q1

REPORT INFORMATION
  Report Type: Spontaneous
  Country: FR (occurrence: FR)
  Receive Date: 20161221
  Receipt Date: 20170104
  Transmission Date: 20170428
  Serious: Yes (Hospitalization)
  Sender: FDA-Public Use
  Company Number: FR-BEH-2016076232

PATIENT
  Age: 77 Year
  Sex: Male

DRUGS (6)
  1. SOTALOL. [Concomitant]
     Active Substance: SOTALOL
     Dosage: 80 MG, QD
     Route: 065
  2. HIZENTRA [Suspect]
     Active Substance: HUMAN IMMUNOGLOBULIN G
     Indication: HYPOGAMMAGLOBULINAEMIA
     Dosage: UNK UNK, QW
     Route: 058
     Dates: start: 20161006, end: 20161102
  3. HIZENTRA [Suspect]
     Active Substance: HUMAN IMMUNOGLOBULIN G
     Indication: LUNG INFECTION
  4. BACTRIM [Concomitant]
     Active Substance: SULFAMETHOXAZOLE\TRIMETHOPRIM
     Dosage: UNK UNK, TIW
     Route: 065
     Dates: start: 2014
  5. LIPIKAR                            /02826001/ [Concomitant]
     Route: 065
  6. CANDESARTAN [Concomitant]
     Active Substance: CANDESARTAN
     Dosage: 8 MG, QD
     Route: 065

REACTIONS (9)
  - Pruritus generalised [Unknown]
  - Burning sensation [Unknown]
  - Oedema peripheral [Recovering/Resolving]
  - Oedema [Recovering/Resolving]
  - Neurodermatitis [Unknown]
  - Skin exfoliation [Unknown]
  - Dermatitis exfoliative [Unknown]
  - Generalised erythema [Unknown]
  - Lymphadenopathy [Unknown]

NARRATIVE: CASE EVENT DATE: 20161105
